FAERS Safety Report 6068846-4 (Version None)
Quarter: 2009Q1

REPORT INFORMATION
  Report Type: 
  Country: None (occurrence: None)
  Receive Date: 20090206
  Receipt Date: 20090128
  Transmission Date: 20090719
  Serious: Yes (Other)
  Sender: FDA-Public Use
  Company Number: US-CELGENEUS-163-20785-09011541

PATIENT

DRUGS (5)
  1. THALOMID [Suspect]
     Indication: PROSTATE CANCER METASTATIC
     Route: 048
  2. DOCETAXEL [Suspect]
     Indication: PROSTATE CANCER METASTATIC
     Route: 065
  3. BEVACIZUMAB [Suspect]
     Indication: PROSTATE CANCER METASTATIC
     Route: 065
  4. PREDNISONE [Suspect]
     Indication: PROSTATE CANCER METASTATIC
     Route: 065
  5. ENOXAPARIN SODIUM [Concomitant]
     Indication: THROMBOSIS PROPHYLAXIS
     Route: 065

REACTIONS (7)
  - FEBRILE NEUTROPENIA [None]
  - GASTROINTESTINAL PERFORATION [None]
  - HAEMORRHAGE [None]
  - OESOPHAGEAL PERFORATION [None]
  - OSTEONECROSIS [None]
  - SYNCOPE [None]
  - THROMBOSIS [None]
